FAERS Safety Report 18649395 (Version 7)
Quarter: 2021Q2

REPORT INFORMATION
  Report Type: Report from Study
  Country: US (occurrence: US)
  Receive Date: 20201222
  Receipt Date: 20210504
  Transmission Date: 20210717
  Serious: Yes (Other)
  Sender: FDA-Public Use
  Company Number: US-PFIZER INC-2020467650

PATIENT
  Age: 70 Year
  Sex: Female

DRUGS (1)
  1. IBRANCE [Suspect]
     Active Substance: PALBOCICLIB
     Indication: BREAST CANCER FEMALE
     Dosage: 100 MG, CYCLIC (ONCE DAILY 21 DAYS ON, 7 DAYS OFF)
     Route: 048
     Dates: start: 20201123, end: 202104

REACTIONS (14)
  - Musculoskeletal chest pain [Unknown]
  - Myelosuppression [Unknown]
  - Dizziness [Unknown]
  - Nausea [Unknown]
  - Retching [Unknown]
  - Ear pain [Not Recovered/Not Resolved]
  - Oropharyngeal pain [Recovered/Resolved]
  - Cough [Unknown]
  - Pain in jaw [Not Recovered/Not Resolved]
  - Back pain [Unknown]
  - Product dose omission in error [Unknown]
  - Mass [Unknown]
  - Pain in extremity [Unknown]
  - Neoplasm progression [Unknown]

NARRATIVE: CASE EVENT DATE: 2020
